FAERS Safety Report 6587003-6 (Version None)
Quarter: 2010Q1

REPORT INFORMATION
  Report Type: 
  Country: None (occurrence: None)
  Receive Date: 20100217
  Receipt Date: 20090406
  Transmission Date: 20100710
  Serious: No
  Sender: FDA-Public Use
  Company Number: US-ALLERGAN-0904706US

PATIENT
  Sex: Female

DRUGS (1)
  1. BOTOX [Suspect]
     Indication: BLEPHAROSPASM
     Dosage: 80 UNITS, SINGLE
     Route: 030
     Dates: start: 20090210, end: 20090210

REACTIONS (1)
  - THERAPEUTIC RESPONSE DECREASED [None]
